FAERS Safety Report 8936734 (Version 1)
Quarter: 2012Q4

REPORT INFORMATION
  Report Type: 
  Country: CN (occurrence: CN)
  Receive Date: 20121130
  Receipt Date: 20121130
  Transmission Date: 20130627
  Serious: Yes (Other)
  Sender: FDA-Public Use
  Company Number: CN-ROCHE-1160070

PATIENT

DRUGS (6)
  1. RITUXIMAB [Suspect]
     Indication: B-CELL LYMPHOMA
     Route: 042
  2. FLUDARABINE [Suspect]
     Indication: B-CELL LYMPHOMA
     Dosage: day 1-3
     Route: 042
  3. PIRARUBICIN [Suspect]
     Indication: B-CELL LYMPHOMA
     Dosage: on day 1
     Route: 042
  4. CYCLOPHOSPHAMIDE [Suspect]
     Indication: B-CELL LYMPHOMA
     Dosage: on day 1
     Route: 042
  5. VINDESINE [Suspect]
     Indication: B-CELL LYMPHOMA
     Dosage: on day 1
     Route: 065
  6. PREDNISONE [Suspect]
     Indication: B-CELL LYMPHOMA
     Dosage: day 1-5
     Route: 048

REACTIONS (6)
  - Gastrointestinal disorder [Unknown]
  - Anaemia [Unknown]
  - Leukopenia [Unknown]
  - Thrombocytopenia [Unknown]
  - Neurotoxicity [Unknown]
  - Alopecia [Unknown]
